FAERS Safety Report 6657939-6 (Version None)
Quarter: 2010Q1

REPORT INFORMATION
  Report Type: 
  Country: None (occurrence: None)
  Receive Date: 20100330
  Receipt Date: 20100301
  Transmission Date: 20100710
  Serious: No
  Sender: FDA-Public Use
  Company Number: US-JNJFOC-20100103142

PATIENT
  Sex: Female

DRUGS (6)
  1. INVEGA SUSTENNA [Suspect]
     Indication: DRUG USE FOR UNKNOWN INDICATION
  2. SEROQUEL [Concomitant]
     Indication: BIPOLAR DISORDER
  3. LITHIUM [Concomitant]
     Indication: BIPOLAR DISORDER
  4. LAMICTAL CD [Concomitant]
     Indication: BIPOLAR DISORDER
  5. KLONOPIN [Concomitant]
     Indication: ANXIETY DISORDER
  6. ATIVAN [Concomitant]
     Indication: ANXIETY DISORDER

REACTIONS (5)
  - BLUNTED AFFECT [None]
  - COGWHEEL RIGIDITY [None]
  - GAIT DISTURBANCE [None]
  - PARKINSONISM [None]
  - TREMOR [None]
